FAERS Safety Report 8383593-1 (Version None)
Quarter: 2012Q1

REPORT INFORMATION
  Report Type: 
  Country: None (occurrence: None)
  Receive Date: 20120323
  Receipt Date: 20110302
  Transmission Date: 20120608
  Serious: Yes (Other)
  Sender: FDA-Public Use
  Company Number: 163-21880-11030631

PATIENT
  Age: 73 Year
  Sex: Female
  Weight: 64.4108 kg

DRUGS (10)
  1. ASPIRIN [Concomitant]
  2. ACETAMINOPHEN [Concomitant]
  3. DEXAMETHASONE [Concomitant]
  4. AMLODIPINE [Concomitant]
  5. CHONDROITIN (CHONDROITIN) [Concomitant]
  6. REVLIMID [Suspect]
     Indication: MULTIPLE MYELOMA
     Dosage: 15 MG, 1 IN 1 D, PO
     Route: 048
     Dates: start: 20101230
  7. PRILOSEC [Concomitant]
  8. AMBIEN [Concomitant]
  9. ZOMETA [Concomitant]
  10. GUCOSAMINE (GLUCOSAMINE) [Concomitant]

REACTIONS (2)
  - HAEMOGLOBIN DECREASED [None]
  - FATIGUE [None]
